FAERS Safety Report 7594709-9 (Version None)
Quarter: 2011Q3

REPORT INFORMATION
  Report Type: 
  Country: None (occurrence: None)
  Receive Date: 20110707
  Receipt Date: 20110629
  Transmission Date: 20111222
  Serious: Yes (Other)
  Sender: FDA-Public Use
  Company Number: JP-ASTELLAS-2011JP004358

PATIENT
  Age: 56 Year
  Sex: Female

DRUGS (4)
  1. FLUDARABINE PHOSPHATE [Concomitant]
     Dosage: 120 MG/M2, UNKNOWN/D
     Route: 065
  2. L-PAM [Concomitant]
     Dosage: 80 MG/M2, UNKNOWN/D
     Route: 065
  3. METHOTREXATE [Concomitant]
     Indication: PROPHYLAXIS AGAINST GRAFT VERSUS HOST DISEASE
     Route: 065
  4. PROGRAF [Suspect]
     Indication: PROPHYLAXIS AGAINST GRAFT VERSUS HOST DISEASE
     Dosage: UNK M, UNK
     Route: 065

REACTIONS (4)
  - GRAFT VERSUS HOST DISEASE [None]
  - CEREBRAL HAEMORRHAGE [None]
  - THROMBOTIC MICROANGIOPATHY [None]
  - DRUG INEFFECTIVE [None]
